FAERS Safety Report 7624318-4 (Version None)
Quarter: 2011Q3

REPORT INFORMATION
  Report Type: 
  Country: None (occurrence: None)
  Receive Date: 20110720
  Receipt Date: 20110711
  Transmission Date: 20111222
  Serious: Yes (Hospitalization)
  Sender: FDA-Public Use
  Company Number: US-BAYER-201026194NA

PATIENT
  Age: 47 Year
  Sex: Female

DRUGS (5)
  1. IRON SUPPLEMENT [Concomitant]
     Indication: BLOOD COUNT ABNORMAL
  2. PRAVASTATIN [Concomitant]
     Indication: BLOOD CHOLESTEROL ABNORMAL
  3. BETASERON [Suspect]
     Indication: MULTIPLE SCLEROSIS
     Dosage: 8 MIU, QOD
     Route: 058
     Dates: start: 20090923
  4. BETASERON [Suspect]
     Dosage: 8 MIU, QOD
     Route: 058
  5. SYNTHROID [Concomitant]
     Indication: THYROID DISORDER

REACTIONS (9)
  - UTERINE LEIOMYOMA [None]
  - MOBILITY DECREASED [None]
  - INJECTION SITE RASH [None]
  - GAIT DISTURBANCE [None]
  - MULTIPLE SCLEROSIS RELAPSE [None]
  - INFLAMMATION [None]
  - LIMB DISCOMFORT [None]
  - UTERINE ENLARGEMENT [None]
  - BLOOD COUNT ABNORMAL [None]
